FAERS Safety Report 11790948 (Version 1)
Quarter: 2015Q4

REPORT INFORMATION
  Report Type: Spontaneous
  Country: US (occurrence: US)
  Receive Date: 20151201
  Receipt Date: 20151201
  Transmission Date: 20160305
  Serious: No
  Sender: FDA-Public Use
  Company Number: US-SA-2015SA014557

PATIENT
  Sex: Male

DRUGS (2)
  1. RENVELA [Suspect]
     Active Substance: SEVELAMER CARBONATE
     Indication: CHRONIC KIDNEY DISEASE
     Dosage: RENVELA 800 MG/ 3 TABLETS WITH MEALS AND 2 WITH SNACKS
     Route: 048
     Dates: start: 2014
  2. RENVELA [Suspect]
     Active Substance: SEVELAMER CARBONATE
     Indication: CHRONIC KIDNEY DISEASE
     Dosage: 800 MG 2 TAB WITH MEALS
     Route: 048
     Dates: start: 20150202

REACTIONS (1)
  - Rash pruritic [Not Recovered/Not Resolved]
